FAERS Safety Report 9386043 (Version 2)
Quarter: 2013Q3

REPORT INFORMATION
  Report Type: Report from Study
  Country: FR (occurrence: FR)
  Receive Date: 20130705
  Receipt Date: 20130911
  Transmission Date: 20140515
  Serious: Yes (Other)
  Sender: FDA-Public Use
  Company Number: PHHY2013FR070923

PATIENT
  Age: 78 Year
  Sex: Male

DRUGS (5)
  1. CERTICAN [Suspect]
     Indication: RENAL TRANSPLANT
     Dosage: UNK UKN, UNK
     Dates: start: 20100614
  2. CELLCEPT [Concomitant]
     Indication: RENAL TRANSPLANT
     Dosage: UNK UKN, UNK
     Dates: start: 20100505
  3. CELLCEPT [Concomitant]
     Dosage: UNK UKN, UNK
     Dates: start: 20100814, end: 20110517
  4. SOLUPRED [Concomitant]
     Indication: RENAL TRANSPLANT
     Dosage: UNK UKN, UNK
     Dates: start: 20100505
  5. EVEROLIMUS [Concomitant]
     Indication: RENAL TRANSPLANT
     Dosage: UNK UKN, UNK
     Dates: start: 20101111

REACTIONS (1)
  - Diabetes mellitus [Unknown]
